FAERS Safety Report 22260542 (Version 3)
Quarter: 2023Q4

REPORT INFORMATION
  Report Type: Report from Study
  Country: US (occurrence: US)
  Receive Date: 20230427
  Receipt Date: 20231018
  Transmission Date: 20240109
  Serious: No
  Sender: FDA-Public Use
  Company Number: US-002147023-NVSC2023US092351

PATIENT
  Age: 88 Year
  Sex: Male

DRUGS (2)
  1. AFINITOR [Suspect]
     Active Substance: EVEROLIMUS
     Indication: Neuroendocrine tumour
     Dosage: 7.5 MG, QD
     Route: 048
  2. AFINITOR [Suspect]
     Active Substance: EVEROLIMUS
     Indication: Bladder cancer
     Dosage: 5 MG, QD
     Route: 048

REACTIONS (2)
  - Drug intolerance [Unknown]
  - Product use issue [Unknown]

NARRATIVE: CASE EVENT DATE: 20231008
